FAERS Safety Report 18936880 (Version 1)
Quarter: 2021Q1

REPORT INFORMATION
  Report Type: Spontaneous
  Country: CA (occurrence: CA)
  Receive Date: 20210224
  Receipt Date: 20210224
  Transmission Date: 20210420
  Serious: Yes (Other)
  Sender: FDA-Public Use
  Company Number: CA-ANIPHARMA-2021-CA-000252

PATIENT
  Age: 87 Year
  Sex: Female

DRUGS (7)
  1. AMLODIPINE [Suspect]
     Active Substance: AMLODIPINE BESYLATE
     Dosage: UNKNOWN DOSE AND FREQUENCY
     Route: 048
  2. CANDESARTAN CILEXETIL. [Suspect]
     Active Substance: CANDESARTAN CILEXETIL
     Indication: PRODUCT USED FOR UNKNOWN INDICATION
     Dosage: UNKNOWN DOSE AND FREQUENCY
     Route: 048
  3. FUROSEMIDE. [Suspect]
     Active Substance: FUROSEMIDE
     Dosage: UNKNOWN DOSE AND FREQUENCY / 20 MG UNK
     Route: 065
  4. DEXILANT [Suspect]
     Active Substance: DEXLANSOPRAZOLE
     Dosage: UNKNOWN DOSE AND FREQUENCY
     Route: 065
  5. APO?OXAZEPAM [Suspect]
     Active Substance: OXAZEPAM
     Dosage: UNKNOWN DOSE AND FREQUENCY
     Route: 065
  6. METOPROLOL. [Suspect]
     Active Substance: METOPROLOL
     Dosage: UNKNOWN DOSE AND FREQUENCY
     Route: 048
  7. SYNTHROID [Suspect]
     Active Substance: LEVOTHYROXINE SODIUM
     Dosage: UNKNOWN DOSE AND FREQUENCY
     Route: 065

REACTIONS (9)
  - Scoliosis [Unknown]
  - Hypervolaemia [Unknown]
  - Myocardial infarction [Unknown]
  - Nodule [Unknown]
  - Discomfort [Unknown]
  - Dyspnoea [Unknown]
  - Hypokalaemia [Unknown]
  - Osteoarthritis [Unknown]
  - Friedreich^s ataxia [Unknown]
